FAERS Safety Report 4971535-8 (Version None)
Quarter: 2006Q2

REPORT INFORMATION
  Report Type: 
  Country: None (occurrence: None)
  Receive Date: 20060406
  Receipt Date: 20060323
  Transmission Date: 20061013
  Serious: Yes (Hospitalization)
  Sender: FDA-Public Use
  Company Number: 2006P1000152

PATIENT
  Age: 47 Year

DRUGS (3)
  1. RETEPLASE (RETEPLASE) [Suspect]
     Indication: ACUTE MYOCARDIAL INFARCTION
     Dosage: 5 IU X1 IVB
     Route: 040
     Dates: start: 20051029, end: 20051029
  2. REOPRO [Suspect]
     Indication: ACUTE MYOCARDIAL INFARCTION
     Dosage: 8.8 ML X1 IVB ; 4.0 ML
     Route: 040
     Dates: start: 20051029, end: 20051029
  3. HEPARIN [Concomitant]

REACTIONS (4)
  - BLOOD CHOLESTEROL INCREASED [None]
  - BLOOD GLUCOSE INCREASED [None]
  - CORONARY ARTERY STENOSIS [None]
  - HIGH DENSITY LIPOPROTEIN INCREASED [None]
